FAERS Safety Report 4784553-X (Version None)
Quarter: 2005Q3

REPORT INFORMATION
  Report Type: 
  Country: None (occurrence: None)
  Receive Date: 20050930
  Receipt Date: 20050920
  Transmission Date: 20060218
  Serious: Yes (Hospitalization)
  Sender: FDA-Public Use
  Company Number: FR-JNJFOC-20050900703

PATIENT
  Age: 28 Year
  Sex: Female

DRUGS (1)
  1. CONCERTA [Suspect]
     Indication: NARCOLEPSY
     Route: 048

REACTIONS (1)
  - MANIA [None]
